FAERS Safety Report 9131709 (Version 1)
Quarter: 2013Q1

REPORT INFORMATION
  Report Type: Spontaneous
  Country: FR (occurrence: FR)
  Receive Date: 20130301
  Receipt Date: 20130301
  Transmission Date: 20140127
  Serious: Yes (Hospitalization)
  Sender: FDA-Public Use
  Company Number: FR-MERCK-1302FRA012708

PATIENT
  Sex: Male

DRUGS (5)
  1. VELMETIA [Suspect]
     Indication: TYPE 2 DIABETES MELLITUS
     Dosage: UNK
     Route: 048
     Dates: start: 20120228, end: 20121128
  2. PRETERAX (INDAPAMIDE (+) PERINDOPRIL ARGININE) [Concomitant]
     Indication: HYPERTENSION
     Dosage: UNK
     Dates: end: 20130124
  3. KARDEGIC [Concomitant]
     Dosage: UNK
     Dates: end: 20121128
  4. KARDEGIC [Concomitant]
     Dosage: UNK
     Dates: start: 20130124
  5. PYOSTACINE [Concomitant]
     Indication: ECZEMA IMPETIGINOUS
     Dosage: UNK
     Dates: start: 20121107, end: 20121114

REACTIONS (1)
  - Drug reaction with eosinophilia and systemic symptoms [Recovering/Resolving]
